FAERS Safety Report 15906517 (Version 2)
Quarter: 2019Q2

REPORT INFORMATION
  Report Type: Spontaneous
  Country: JP (occurrence: JP)
  Receive Date: 20190204
  Receipt Date: 20190408
  Transmission Date: 20190711
  Serious: Yes (Other)
  Sender: FDA-Public Use
  Company Number: JP-PFIZER INC-2018399610

PATIENT
  Age: 49 Year
  Sex: Female

DRUGS (2)
  1. SUTENT [Suspect]
     Active Substance: SUNITINIB MALATE
     Indication: GASTROINTESTINAL STROMAL TUMOUR
     Dosage: 50 MG, CYCLIC (DAILY, 2 WEEKS ON FOLLOWED BY 1 WEEK OFF)
     Route: 048
     Dates: start: 20180703, end: 20180801
  2. SUTENT [Suspect]
     Active Substance: SUNITINIB MALATE
     Dosage: 37.5 MG, CYCLIC (DAILY, 2 WEEKS ON FOLLOWED BY 1 WEEK OFF)
     Route: 048
     Dates: start: 20180801, end: 20180815

REACTIONS (6)
  - Nausea [Recovering/Resolving]
  - Salmonellosis [Unknown]
  - Gingivitis [Recovering/Resolving]
  - Fatigue [Unknown]
  - Neoplasm progression [Unknown]
  - Diarrhoea [Recovering/Resolving]

NARRATIVE: CASE EVENT DATE: 20180801
